FAERS Safety Report 8633407 (Version 4)
Quarter: 2013Q4

REPORT INFORMATION
  Report Type: Report from Study
  Country: RU (occurrence: RU)
  Receive Date: 20120625
  Receipt Date: 20131025
  Transmission Date: 20140711
  Serious: Yes (Hospitalization, Other)
  Sender: FDA-Public Use
  Company Number: RU-ROCHE-1075628

PATIENT
  Age: 10 Year
  Sex: Female
  Weight: 20 kg

DRUGS (5)
  1. TOCILIZUMAB [Suspect]
     Indication: JUVENILE IDIOPATHIC ARTHRITIS
     Dosage: TOTAL MONTHLY DOSE:160 MG
     Route: 065
     Dates: start: 20110114
  2. IZONIAZID [Concomitant]
  3. ETAMBUTOL [Concomitant]
  4. METHOTREXATE [Concomitant]
     Route: 048
  5. CELLCEPT [Concomitant]
     Route: 048

REACTIONS (7)
  - Pulmonary tuberculosis [Not Recovered/Not Resolved]
  - Pneumothorax [Unknown]
  - Nephroptosis [Unknown]
  - Red blood cell sedimentation rate increased [Unknown]
  - Pancreatic disorder [Unknown]
  - Ultrasound kidney abnormal [Unknown]
  - Biliary dyskinesia [Unknown]
